FAERS Safety Report 9604115 (Version 1)
Quarter: 2013Q4

REPORT INFORMATION
  Report Type: Spontaneous
  Country: US (occurrence: US)
  Receive Date: 20131008
  Receipt Date: 20131008
  Transmission Date: 20140711
  Serious: Yes (Other)
  Sender: FDA-Public Use
  Company Number: US-ASTRAZENECA-2013SE73005

PATIENT
  Age: 66 Year
  Sex: Female

DRUGS (3)
  1. NEXIUM [Suspect]
     Indication: GASTROOESOPHAGEAL REFLUX DISEASE
     Route: 048
  2. NEXIUM [Suspect]
     Indication: GASTRINOMA
     Route: 048
  3. UNSPECIFIED MEDICATION [Concomitant]

REACTIONS (8)
  - Neoplasm malignant [Unknown]
  - Cerebrovascular accident [Unknown]
  - Pain [Unknown]
  - Haemoptysis [Unknown]
  - Bronchopneumonia [Recovered/Resolved]
  - Vomiting [Unknown]
  - Headache [Unknown]
  - Drug dose omission [Unknown]
